FAERS Safety Report 16629804 (Version 1)
Quarter: 2019Q3

REPORT INFORMATION
  Report Type: Spontaneous
  Country: FR (occurrence: FR)
  Receive Date: 20190725
  Receipt Date: 20190725
  Transmission Date: 20191004
  Serious: Yes (Other)
  Sender: FDA-Public Use
  Company Number: FR-TEVA-2019-FR-1081804

PATIENT
  Age: 37 Year
  Sex: Female
  Weight: 54 kg

DRUGS (7)
  1. RHINADVIL, COMPRIME ENROBE [Suspect]
     Active Substance: IBUPROFEN\PSEUDOEPHEDRINE HYDROCHLORIDE
     Dosage: NP
     Route: 048
     Dates: start: 2012
  2. DECONTRACTYL (MEPHENESIN) [Suspect]
     Active Substance: MEPHENESIN
     Dosage: NP
     Route: 048
     Dates: start: 2012
  3. TRAMADOL. [Suspect]
     Active Substance: TRAMADOL
     Dosage: NP
     Route: 048
     Dates: start: 2012
  4. FERVEX [ASCORBIC ACID;PARACETAMOL;PHENIRAMINE MALEATE] [Suspect]
     Active Substance: ACETAMINOPHEN\ASCORBIC ACID\PHENIRAMINE MALEATE
     Dosage: NP
     Route: 048
     Dates: start: 2012
  5. DOLIRHUME [Suspect]
     Active Substance: ACETAMINOPHEN\PSEUDOEPHEDRINE
     Dosage: NP
     Route: 048
     Dates: start: 2012
  6. LUMIRELAX (METHOCARBAMOL\METHYL NICOTINATE) [Suspect]
     Active Substance: METHOCARBAMOL\METHYL NICOTINATE
     Dosage: NP
     Route: 048
     Dates: start: 2012
  7. CODEINE [Suspect]
     Active Substance: CODEINE
     Dosage: 600 MG
     Route: 048
     Dates: start: 2012, end: 201803

REACTIONS (2)
  - Drug abuse [Recovered/Resolved]
  - Dependence [Recovered/Resolved]

NARRATIVE: CASE EVENT DATE: 2012
